FAERS Safety Report 24630403 (Version 1)
Quarter: 2024Q4

REPORT INFORMATION
  Report Type: Other
  Country: US (occurrence: US)
  Receive Date: 20241118
  Receipt Date: 20241118
  Transmission Date: 20250115
  Serious: Yes (Hospitalization)
  Sender: ORBION PHARMACEUTICALS PRIVATE LIMITED
  Company Number: US-OrBion Pharmaceuticals Private Limited-2165246

PATIENT
  Age: 58 Year
  Sex: Male

DRUGS (1)
  1. PANTOPRAZOLE SODIUM [Suspect]
     Active Substance: PANTOPRAZOLE SODIUM
     Indication: Product used for unknown indication

REACTIONS (1)
  - Pneumonia salmonella [Recovering/Resolving]
